FAERS Safety Report 21797880 (Version 1)
Quarter: 2022Q4

REPORT INFORMATION
  Report Type: Report from Study
  Country: US (occurrence: US)
  Receive Date: 20221230
  Receipt Date: 20221230
  Transmission Date: 20230113
  Serious: No
  Sender: FDA-Public Use
  Company Number: US-ABBVIE-22K-163-4471561-00

PATIENT
  Sex: Female

DRUGS (2)
  1. HUMIRA [Suspect]
     Active Substance: ADALIMUMAB
     Indication: Colitis ulcerative
     Dosage: CITRATE FREE/FORM STRENGTH: 40 MILLIGRAM
     Route: 058
     Dates: start: 2022, end: 2022
  2. HUMIRA [Suspect]
     Active Substance: ADALIMUMAB
     Dosage: CITRATE FREE/FORM STRENGTH: 40 MILLIGRAM
     Route: 058
     Dates: start: 2022

REACTIONS (6)
  - Abdominal rigidity [Unknown]
  - Sternal fracture [Unknown]
  - Bone pain [Unknown]
  - Chest discomfort [Unknown]
  - Musculoskeletal chest pain [Unknown]
  - Weight decreased [Unknown]

NARRATIVE: CASE EVENT DATE: 20220101
